FAERS Safety Report 14176125 (Version 1)
Quarter: 2017Q4

REPORT INFORMATION
  Report Type: Report from Study
  Country: US (occurrence: US)
  Receive Date: 20171109
  Receipt Date: 20171109
  Transmission Date: 20180321
  Serious: Yes (Death)
  Sender: FDA-Public Use
  Company Number: US-ACTELION-A-NJ2017-158650

PATIENT
  Age: 87 Year
  Sex: Male
  Weight: 68.27 kg

DRUGS (8)
  1. SILDENAFIL. [Concomitant]
     Active Substance: SILDENAFIL
     Dosage: 20 MG, TID
     Route: 048
     Dates: start: 201704
  2. LASIX [Concomitant]
     Active Substance: FUROSEMIDE
     Dosage: 20 MG, BID
     Dates: start: 201704
  3. METOPROLOL. [Concomitant]
     Active Substance: METOPROLOL
     Dosage: 50 MG, BID
     Dates: start: 201704
  4. OPSUMIT [Suspect]
     Active Substance: MACITENTAN
     Indication: PULMONARY ARTERIAL HYPERTENSION
     Dosage: 10 MG, QD
     Route: 048
     Dates: start: 20170815
  5. PRAVASTATIN. [Concomitant]
     Active Substance: PRAVASTATIN
     Dosage: 20 MG, QD
  6. PACERONE [Concomitant]
     Active Substance: AMIODARONE HYDROCHLORIDE
     Dosage: 200 MG, QD
     Dates: start: 201704
  7. ELIQUIS [Concomitant]
     Active Substance: APIXABAN
     Dosage: 5 MG, BID
     Dates: start: 201704
  8. ALLOPURINOL. [Concomitant]
     Active Substance: ALLOPURINOL
     Dosage: 100 MG, QD

REACTIONS (16)
  - Dyspnoea exertional [Unknown]
  - Dyspnoea [Unknown]
  - Pain in extremity [Unknown]
  - Muscular weakness [Unknown]
  - Dizziness [Unknown]
  - Hypoaesthesia [Unknown]
  - Sepsis [Fatal]
  - Joint injury [Unknown]
  - Back pain [Unknown]
  - Balance disorder [Unknown]
  - Therapy non-responder [Unknown]
  - Clumsiness [Unknown]
  - Haemorrhage [Unknown]
  - Condition aggravated [Unknown]
  - Fall [Recovered/Resolved]
  - Asthenia [Unknown]

NARRATIVE: CASE EVENT DATE: 201708
